FAERS Safety Report 17676160 (Version 1)
Quarter: 2020Q2

REPORT INFORMATION
  Report Type: Spontaneous
  Country: US (occurrence: US)
  Receive Date: 20200415
  Receipt Date: 20200415
  Transmission Date: 20200714
  Serious: Yes (Death, Disabling, Other)
  Sender: FDA-Public Use
  Company Number: None

PATIENT
  Age: 90 Year
  Sex: Female
  Weight: 63.5 kg

DRUGS (4)
  1. COUMADIN [Suspect]
     Active Substance: WARFARIN SODIUM
     Indication: PRODUCT USED FOR UNKNOWN INDICATION
     Route: 048
     Dates: start: 2011
  2. WHEELCHAIR [Concomitant]
     Active Substance: DEVICE
  3. PACEMAKER [Concomitant]
     Active Substance: DEVICE
  4. MULTIVITAMIN [Concomitant]
     Active Substance: VITAMINS

REACTIONS (1)
  - Fear of disease [None]

NARRATIVE: CASE EVENT DATE: 20200331
